FAERS Safety Report 6466504-5 (Version None)
Quarter: 2009Q4

REPORT INFORMATION
  Report Type: 
  Country: None (occurrence: None)
  Receive Date: 20091127
  Receipt Date: 20091116
  Transmission Date: 20100525
  Serious: Yes (Hospitalization)
  Sender: FDA-Public Use
  Company Number: 2009AC000234

PATIENT
  Age: 72 Year
  Sex: Female

DRUGS (33)
  1. DIGOXIN [Suspect]
     Dosage: .25 MG; QD; PO
     Route: 048
  2. ASPIRIN [Concomitant]
  3. TOPROL-XL [Concomitant]
  4. XANAX [Concomitant]
  5. ZYRTEC [Concomitant]
  6. FUROSEMIDE [Concomitant]
  7. SPIRONOLACATONE [Concomitant]
  8. PREVACID [Concomitant]
  9. FISH OIL [Concomitant]
  10. CALCIUM [Concomitant]
  11. VITAMIN E [Concomitant]
  12. OMEPRAZOLE [Concomitant]
  13. LEVOTHYROXINE SODIUM [Concomitant]
  14. TRICOR [Concomitant]
  15. METOPROLOL [Concomitant]
  16. KEFLEX [Concomitant]
  17. SYNTHROID [Concomitant]
  18. DIAZEPAM [Concomitant]
  19. PRAVASTATIN [Concomitant]
  20. FLUCONAZOLE [Concomitant]
  21. CEPHALEXIN [Concomitant]
  22. AVELOX [Concomitant]
  23. ADVICOR [Concomitant]
  24. HYDROCORTISONE [Concomitant]
  25. METHPREDNISONE [Concomitant]
  26. CLINDAMYCIN [Concomitant]
  27. FEXOFENADINE [Concomitant]
  28. SPIRONOLACT [Concomitant]
  29. CIPROFLOXACN [Concomitant]
  30. AVELOX [Concomitant]
  31. MEDROL [Concomitant]
  32. SOLU-MEDROL [Concomitant]
  33. CYMBALTA [Concomitant]

REACTIONS (36)
  - ANHEDONIA [None]
  - ANXIETY [None]
  - ASTHENIA [None]
  - ATRIAL TACHYCARDIA [None]
  - CARDIAC FAILURE [None]
  - CARDIAC FAILURE CONGESTIVE [None]
  - CARDIOMYOPATHY [None]
  - CHEST PAIN [None]
  - DECREASED APPETITE [None]
  - DEHYDRATION [None]
  - DIZZINESS [None]
  - DYSPNOEA [None]
  - EAR DISORDER [None]
  - FATIGUE [None]
  - FEAR [None]
  - FEELING ABNORMAL [None]
  - FEMORAL ARTERIAL STENOSIS [None]
  - HYPERLIPIDAEMIA [None]
  - HYPERTENSION [None]
  - HYPOTHYROIDISM [None]
  - INFLUENZA [None]
  - INTERMITTENT CLAUDICATION [None]
  - ISCHAEMIA [None]
  - MULTIPLE INJURIES [None]
  - NEUROPATHY PERIPHERAL [None]
  - OEDEMA PERIPHERAL [None]
  - OROPHARYNGEAL PAIN [None]
  - ORTHOPNOEA [None]
  - PALPITATIONS [None]
  - POSTNASAL DRIP [None]
  - RASH MACULAR [None]
  - STRESS [None]
  - SUPRAVENTRICULAR TACHYCARDIA [None]
  - SURGERY [None]
  - URINARY TRACT INFECTION ENTEROCOCCAL [None]
  - VENTRICULAR TACHYCARDIA [None]
